FAERS Safety Report 4649503-5 (Version None)
Quarter: 2005Q2

REPORT INFORMATION
  Report Type: 
  Country: None (occurrence: None)
  Receive Date: 20050428
  Receipt Date: 20050428
  Transmission Date: 20051028
  Serious: Yes (Death, Life-Threatening, Hospitalization)
  Sender: FDA-Public Use
  Company Number: None

PATIENT
  Sex: Male

DRUGS (2)
  1. ZIPRASIDONE [Suspect]
     Indication: BIPOLAR DISORDER
     Dosage: 40MG PO QD   PRIOR TO HOSPITAL ADM
     Route: 048
  2. ZIPRASIDONE [Suspect]
     Indication: MANIA
     Dosage: 40MG PO QD   PRIOR TO HOSPITAL ADM
     Route: 048

REACTIONS (1)
  - BODY TEMPERATURE INCREASED [None]
